FAERS Safety Report 9900220 (Version 1)
Quarter: 2014Q1

REPORT INFORMATION
  Report Type: Spontaneous
  Country: SE (occurrence: SE)
  Receive Date: 20140215
  Receipt Date: 20140215
  Transmission Date: 20141002
  Serious: Yes (Hospitalization)
  Sender: FDA-Public Use
  Company Number: SE-JNJFOC-20140205795

PATIENT
  Age: 49 Year
  Sex: Male

DRUGS (1)
  1. IPREN [Suspect]
     Indication: PRODUCT USED FOR UNKNOWN INDICATION
     Route: 065

REACTIONS (3)
  - Skin reaction [Unknown]
  - Renal impairment [Recovered/Resolved]
  - Blood creatine increased [Recovered/Resolved]
